FAERS Safety Report 11939304 (Version 1)
Quarter: 2016Q1

REPORT INFORMATION
  Report Type: Spontaneous
  Country: FR (occurrence: FR)
  Receive Date: 20160122
  Receipt Date: 20160122
  Transmission Date: 20160526
  Serious: Yes (Other)
  Sender: FDA-Public Use
  Company Number: FR-MEDTRONIC-1046769

PATIENT
  Age: 46 Year
  Sex: Male

DRUGS (1)
  1. LIORESAL [Suspect]
     Active Substance: BACLOFEN
     Indication: PARAPARESIS
     Route: 037

REACTIONS (6)
  - Pain [None]
  - Device malfunction [None]
  - Sepsis [None]
  - Implant site extravasation [None]
  - Bacterial test positive [None]
  - Muscle spasticity [None]
